FAERS Safety Report 18814053 (Version 1)
Quarter: 2021Q1

REPORT INFORMATION
  Report Type: Spontaneous
  Country: US (occurrence: US)
  Receive Date: 20210201
  Receipt Date: 20210201
  Transmission Date: 20210419
  Serious: Yes (Other)
  Sender: FDA-Public Use
  Company Number: US-PFIZER INC-2020227556

PATIENT
  Age: 78 Year
  Sex: Female

DRUGS (1)
  1. RETACRIT [Suspect]
     Active Substance: EPOETIN ALFA-EPBX
     Indication: END STAGE RENAL DISEASE
     Dosage: 20000 IU, WEEKLY

REACTIONS (2)
  - Off label use [Unknown]
  - Renal failure [Unknown]
